FAERS Safety Report 23864494 (Version 3)
Quarter: 2025Q2

REPORT INFORMATION
  Report Type: Spontaneous
  Country: US (occurrence: US)
  Receive Date: 20240516
  Receipt Date: 20250521
  Transmission Date: 20250716
  Serious: Yes (Other)
  Sender: SANOFI AVENTIS
  Company Number: US-SA-SAC20240510001223

PATIENT
  Age: 70 Year
  Sex: Male

DRUGS (15)
  1. REZUROCK [Suspect]
     Active Substance: BELUMOSUDIL
     Indication: Graft versus host disease
     Dosage: 200 MG, QD
     Route: 048
     Dates: start: 20220624
  2. LISINOPRIL [Concomitant]
     Active Substance: LISINOPRIL
  3. METOPROLOL TARTRATE [Concomitant]
     Active Substance: METOPROLOL TARTRATE
  4. PREDNISONE [Concomitant]
     Active Substance: PREDNISONE
  5. KEPPRA [Concomitant]
     Active Substance: LEVETIRACETAM
  6. CALCIUM OYSTER SHELL [CALCIUM CARBONATE] [Concomitant]
  7. AMLODIPINE BESYLATE [Concomitant]
     Active Substance: AMLODIPINE BESYLATE
  8. ACYCLOVIR [Concomitant]
     Active Substance: ACYCLOVIR
  9. VITAMIN D3 [Concomitant]
     Active Substance: CHOLECALCIFEROL
  10. MAGNESIUM OXIDE [Concomitant]
     Active Substance: MAGNESIUM OXIDE
  11. DOXYCYCLINE [Concomitant]
     Active Substance: DOXYCYCLINE
  12. POSACONAZOLE [Concomitant]
     Active Substance: POSACONAZOLE
  13. TRIAMCINOLONE ACETONIDE [Concomitant]
     Active Substance: TRIAMCINOLONE ACETONIDE
  14. LEVOTHYROXINE SODIUM [Concomitant]
     Active Substance: LEVOTHYROXINE SODIUM
  15. BACTRIM DS [Concomitant]
     Active Substance: SULFAMETHOXAZOLE\TRIMETHOPRIM

REACTIONS (2)
  - Lyme disease [Recovering/Resolving]
  - Blood iron increased [Not Recovered/Not Resolved]
